FAERS Safety Report 7338247-7 (Version None)
Quarter: 2011Q1

REPORT INFORMATION
  Report Type: 
  Country: None (occurrence: None)
  Receive Date: 20110308
  Receipt Date: 20110223
  Transmission Date: 20110831
  Serious: Yes (Hospitalization)
  Sender: FDA-Public Use
  Company Number: FR-ELI_LILLY_AND_COMPANY-FR201103000972

PATIENT
  Sex: Female

DRUGS (3)
  1. CYMBALTA [Suspect]
     Route: 048
     Dates: start: 20081102, end: 20081116
  2. LAMICTAL [Concomitant]
     Route: 048
     Dates: start: 20081102, end: 20081116
  3. RIVOTRIL [Concomitant]
     Route: 048
     Dates: start: 20081102, end: 20081116

REACTIONS (3)
  - HYPERSENSITIVITY [None]
  - RASH MACULO-PAPULAR [None]
  - PYREXIA [None]
